FAERS Safety Report 7451575-X (Version None)
Quarter: 2011Q2

REPORT INFORMATION
  Report Type: 
  Country: None (occurrence: None)
  Receive Date: 20110502
  Receipt Date: 20100318
  Transmission Date: 20111010
  Serious: No
  Sender: FDA-Public Use
  Company Number: US-ASTRAZENECA-2010SE11938

PATIENT
  Age: 73 Year
  Sex: Female
  Weight: 108.9 kg

DRUGS (4)
  1. NEXIUM [Suspect]
     Route: 048
     Dates: start: 20100209, end: 20100201
  2. LEVALIGN [Concomitant]
     Indication: THYROID DISORDER
  3. LEVOBUNOLOL [Concomitant]
     Indication: GLAUCOMA
  4. COUMADIN [Concomitant]
     Indication: THROMBOSIS

REACTIONS (1)
  - PNEUMONIA [None]
